FAERS Safety Report 19067961 (Version 1)
Quarter: 2021Q1

REPORT INFORMATION
  Report Type: Spontaneous
  Country: US (occurrence: US)
  Receive Date: 20210326
  Receipt Date: 20210326
  Transmission Date: 20210420
  Serious: No
  Sender: FDA-Public Use
  Company Number: None

PATIENT
  Sex: Male

DRUGS (2)
  1. ENOXAPARIN SOD SYRINGE 30MG/.3ML [Suspect]
     Active Substance: ENOXAPARIN SODIUM
     Indication: LUNG NEOPLASM MALIGNANT
     Route: 058
     Dates: start: 202103
  2. ENOXAPARIN [Concomitant]
     Active Substance: ENOXAPARIN

REACTIONS (2)
  - Injection site haemorrhage [None]
  - Injection site bruising [None]
